FAERS Safety Report 7201196-9 (Version None)
Quarter: 2010Q4

REPORT INFORMATION
  Report Type: 
  Country: None (occurrence: None)
  Receive Date: 20101214
  Receipt Date: 20101125
  Transmission Date: 20110411
  Serious: Yes (Congenital Anomaly)
  Sender: FDA-Public Use
  Company Number: TOR 2010-0106

PATIENT
  Age: 34 Year
  Sex: Female

DRUGS (4)
  1. FARESTON [Suspect]
     Indication: PAGET'S DISEASE OF THE BREAST
     Dosage: ORAL
     Route: 048
  2. FLUOROURACIL [Suspect]
     Indication: PAGET'S DISEASE OF THE BREAST
     Dosage: ORAL
     Route: 048
  3. UFT [Suspect]
     Indication: PAGET'S DISEASE OF THE BREAST
     Dosage: ORAL
     Route: 048
  4. TAMOXIFEN CITRATE [Suspect]
     Indication: PAGET'S DISEASE OF THE BREAST
     Dosage: ORAL
     Route: 048

REACTIONS (3)
  - ABORTION SPONTANEOUS [None]
  - DRUG EXPOSURE DURING PREGNANCY [None]
  - PREGNANCY [None]
